FAERS Safety Report 8044349-2 (Version None)
Quarter: 2012Q1

REPORT INFORMATION
  Report Type: 
  Country: None (occurrence: None)
  Receive Date: 20120113
  Receipt Date: 20120103
  Transmission Date: 20120608
  Serious: Yes (Hospitalization, Other)
  Sender: FDA-Public Use
  Company Number: US-RB-032735-12

PATIENT
  Age: 76 Year
  Sex: Female

DRUGS (6)
  1. LISINOPRIL [Concomitant]
     Indication: BLOOD CHOLESTEROL
  2. LEVOXYL [Concomitant]
     Indication: THYROID DISORDER
  3. LOPRESSOR [Concomitant]
     Indication: BLOOD CHOLESTEROL
  4. KEPPRA [Concomitant]
     Indication: CONVULSION
  5. DELSYM [Suspect]
     Indication: COUGH
     Route: 048
     Dates: start: 20111223
  6. DELSYM [Suspect]
     Indication: COUGH
     Route: 048
     Dates: start: 20111222

REACTIONS (6)
  - GAIT DISTURBANCE [None]
  - BLOOD PRESSURE INCREASED [None]
  - MENTAL DISORDER [None]
  - ASTHENIA [None]
  - CONFUSIONAL STATE [None]
  - HYPONATRAEMIA [None]
